FAERS Safety Report 20816467 (Version 3)
Quarter: 2022Q3

REPORT INFORMATION
  Report Type: Spontaneous
  Country: US (occurrence: US)
  Receive Date: 20220512
  Receipt Date: 20220804
  Transmission Date: 20221026
  Serious: Yes (Other)
  Sender: FDA-Public Use
  Company Number: US-AUROBINDO-AUR-APL-2022-014274

PATIENT
  Age: 63 Year
  Sex: Female
  Weight: 49 kg

DRUGS (1)
  1. LOSARTAN POTASSIUM [Suspect]
     Active Substance: LOSARTAN POTASSIUM
     Indication: Hypertension
     Dosage: 1 DOSAGE FORM, ONCE A DAY
     Route: 048
     Dates: start: 20211020

REACTIONS (14)
  - Tachycardia [Recovered/Resolved]
  - Emergency care [Unknown]
  - Blood pressure abnormal [Recovering/Resolving]
  - Electric shock sensation [Recovered/Resolved]
  - Feeling jittery [Recovered/Resolved]
  - Gait disturbance [Recovered/Resolved]
  - Dyspnoea [Recovered/Resolved]
  - Chest pain [Recovered/Resolved]
  - Insomnia [Recovered/Resolved]
  - Muscle tightness [Recovered/Resolved]
  - Dry mouth [Recovered/Resolved]
  - Decreased appetite [Recovered/Resolved]
  - Product substitution issue [Unknown]
  - Product quality issue [Unknown]
